FAERS Safety Report 4399201-0 (Version None)
Quarter: 2004Q3

REPORT INFORMATION
  Report Type: 
  Country: None (occurrence: None)
  Receive Date: 20040715
  Receipt Date: 20040715
  Transmission Date: 20050211
  Serious: Yes (Other)
  Sender: FDA-Public Use
  Company Number: None

PATIENT
  Sex: Female
  Weight: 83.9154 kg

DRUGS (1)
  1. LOVASTATIN [Suspect]
     Indication: CARDIAC DISORDER
     Dosage: 2 TABLET DAILY ORAL
     Route: 048
     Dates: start: 20011125, end: 20040215

REACTIONS (6)
  - CATARACT [None]
  - JOINT RANGE OF MOTION DECREASED [None]
  - MEMORY IMPAIRMENT [None]
  - MENTAL IMPAIRMENT [None]
  - MYALGIA [None]
  - VISUAL ACUITY REDUCED [None]
